FAERS Safety Report 8273664-2 (Version None)
Quarter: 2012Q2

REPORT INFORMATION
  Report Type: 
  Country: None (occurrence: None)
  Receive Date: 20120411
  Receipt Date: 20120224
  Transmission Date: 20120825
  Serious: No
  Sender: FDA-Public Use
  Company Number: US-TEVA-324744USA

PATIENT
  Age: 20 Year
  Sex: Male

DRUGS (1)
  1. NUVIGIL [Suspect]
     Route: 048
     Dates: start: 20110101

REACTIONS (3)
  - FLUSHING [None]
  - HEART RATE INCREASED [None]
  - BLOOD PRESSURE INCREASED [None]
